FAERS Safety Report 10196084 (Version 1)
Quarter: 2014Q2

REPORT INFORMATION
  Report Type: Spontaneous
  Country: US (occurrence: US)
  Receive Date: 20140527
  Receipt Date: 20140527
  Transmission Date: 20141212
  Serious: No
  Sender: FDA-Public Use
  Company Number: US-PFIZER INC-2014140529

PATIENT
  Age: 56 Year
  Sex: Male
  Weight: 72.56 kg

DRUGS (1)
  1. NEURONTIN [Suspect]
     Indication: FACIAL PAIN
     Dosage: 300 MG, 3X/DAY
     Dates: start: 201402

REACTIONS (1)
  - Drug ineffective [Unknown]
